FAERS Safety Report 18356925 (Version 2)
Quarter: 2020Q4

REPORT INFORMATION
  Report Type: Spontaneous
  Country: PT (occurrence: PT)
  Receive Date: 20201007
  Receipt Date: 20201204
  Transmission Date: 20210114
  Serious: Yes (Hospitalization, Other)
  Sender: FDA-Public Use
  Company Number: PT-MYLANLABS-2020M1084433

PATIENT
  Age: 31 Year
  Sex: Female

DRUGS (10)
  1. METHYLDOPA. [Concomitant]
     Active Substance: METHYLDOPA
     Indication: CHRONIC KIDNEY DISEASE
     Dosage: 500 MILLIGRAM, QD
  2. ACETYLSALICYLIC ACID [Suspect]
     Active Substance: ASPIRIN
     Dosage: 100 MILLIGRAM, QD
  3. FOLIC ACID. [Concomitant]
     Active Substance: FOLIC ACID
     Indication: CHRONIC KIDNEY DISEASE
     Dosage: 5 MILLIGRAM ID
  4. DARBEPOETIN ALFA [Concomitant]
     Active Substance: DARBEPOETIN ALFA
     Indication: CHRONIC KIDNEY DISEASE
     Dosage: 10 MICROGRAM, QW
  5. ACETYLSALICYLIC ACID [Suspect]
     Active Substance: ASPIRIN
     Indication: CHRONIC KIDNEY DISEASE
     Dosage: 100 MILLIGRAM ID
  6. AMLODIPINE [Suspect]
     Active Substance: AMLODIPINE BESYLATE
     Indication: HYPERVOLAEMIA
  7. FOLIC ACID. [Concomitant]
     Active Substance: FOLIC ACID
     Dosage: 5 MILLIGRAM, QD
  8. IRON [Concomitant]
     Active Substance: IRON
     Dosage: UNK
  9. AMLODIPINE [Suspect]
     Active Substance: AMLODIPINE BESYLATE
     Indication: HYPERTENSION
     Dosage: UNK
  10. BETAMETHASONE. [Concomitant]
     Active Substance: BETAMETHASONE
     Dosage: UNK

REACTIONS (10)
  - Respiratory failure [Unknown]
  - Drug-induced liver injury [Unknown]
  - Respiratory tract infection [Unknown]
  - Hepatocellular injury [Unknown]
  - Hyperbilirubinaemia [Unknown]
  - Hypervolaemia [Unknown]
  - Hypertension [Unknown]
  - Maternal exposure during pregnancy [Recovered/Resolved]
  - Renal impairment [Unknown]
  - Premature delivery [Recovered/Resolved]

NARRATIVE: CASE EVENT DATE: 201007
